FAERS Safety Report 5674472-9 (Version None)
Quarter: 2008Q1

REPORT INFORMATION
  Report Type: 
  Country: None (occurrence: None)
  Receive Date: 20080317
  Receipt Date: 20080228
  Transmission Date: 20080703
  Serious: Yes (Hospitalization)
  Sender: FDA-Public Use
  Company Number: 2007JP005367

PATIENT
  Age: 68 Year
  Sex: Female
  Weight: 43 kg

DRUGS (14)
  1. PROGRAF [Suspect]
     Indication: LUPUS NEPHRITIS
     Dosage: 2 MG, UID/QD, ORAL
     Route: 048
     Dates: start: 20071017, end: 20071112
  2. MUCOSTA      (REBAMIPIDE) TABLET [Concomitant]
  3. TAKEPRON           (LANSOPRAZOLE) ORODISPERSIBLE CR TABLET [Concomitant]
  4. KREMEZIN             (CHARCOAL, ACTIVATED) FINE GRANULE [Concomitant]
  5. LASIX [Concomitant]
  6. FLUITRAN           (TRICHLORMETHIAZIDE) TABLET [Concomitant]
  7. ALFAROL     (ALFACALCIDOL) TABLET [Concomitant]
  8. ALOSITOL     TABLET [Concomitant]
  9. PREDNISOLONE TAB [Concomitant]
  10. PERSANTIN           (DIPYRIDAMOLE) TABLET [Concomitant]
  11. SODIUM BICARBONATE      (SODIUM BICARBONATE) FINE GRANULE [Concomitant]
  12. ARGAMATE    (CALCIUM POLYSTYRENE SULFONATE) JELLY [Concomitant]
  13. CALTAN        TABLET [Concomitant]
  14. CLINORIL       (SULINDAC) TABLET [Concomitant]

REACTIONS (8)
  - ABNORMAL BEHAVIOUR [None]
  - ANOREXIA [None]
  - DELIRIUM [None]
  - ENCEPHALITIS HERPES [None]
  - EXPRESSIVE LANGUAGE DISORDER [None]
  - MENINGITIS ASEPTIC [None]
  - SPEECH DISORDER [None]
  - WHEELCHAIR USER [None]
